FAERS Safety Report 10495485 (Version 1)
Quarter: 2014Q3

REPORT INFORMATION
  Report Type: Spontaneous
  Country: US (occurrence: None)
  Receive Date: 20140815
  Receipt Date: 20140815
  Transmission Date: 20150326
  Serious: Yes (Other)
  Sender: FDA-Public Use
  Company Number: ADR-2014-00460

PATIENT
  Sex: Female

DRUGS (1)
  1. LIORESAL [Suspect]
     Active Substance: BACLOFEN
     Indication: MUSCLE SPASTICITY
     Dosage: 2000 AT A DPSE PF 218 VIA AN INTRATHECAL PUMP

REACTIONS (4)
  - Implant site infection [None]
  - Implant site discharge [None]
  - Implant site erosion [None]
  - Wound dehiscence [None]
